FAERS Safety Report 7617438-1 (Version None)
Quarter: 2011Q3

REPORT INFORMATION
  Report Type: 
  Country: None (occurrence: None)
  Receive Date: 20110718
  Receipt Date: 20110712
  Transmission Date: 20111222
  Serious: No
  Sender: FDA-Public Use
  Company Number: US-PFIZER INC-2011119150

PATIENT
  Sex: Male
  Weight: 72.562 kg

DRUGS (13)
  1. NEURONTIN [Suspect]
     Indication: PRURITUS
     Dosage: 900 MG, 1X/DAY
     Route: 048
     Dates: start: 20060101, end: 20110301
  2. BENAZEPRIL [Concomitant]
     Indication: HYPERTENSION
     Dosage: UNK
  3. FERROUS SULFATE TAB [Concomitant]
     Indication: ANAEMIA
     Dosage: UNK
  4. NEURONTIN [Suspect]
     Dosage: UNK
     Dates: start: 20110510
  5. PAXIL [Concomitant]
     Indication: DEPRESSION
     Dosage: UNK
  6. ACETYLSALICYLIC ACID [Concomitant]
     Dosage: UNK
  7. AMBIEN [Concomitant]
     Indication: SLEEP DISORDER
     Dosage: 5 MG, UNK
  8. AMLODIPINE [Concomitant]
     Indication: HYPERTENSION
     Dosage: 10 MG, UNK
  9. WELLBUTRIN [Concomitant]
     Indication: DEPRESSION
     Dosage: UNK
  10. VITAMIN B-12 [Concomitant]
     Indication: HYPOVITAMINOSIS
     Dosage: UNK
  11. LYRICA [Suspect]
     Indication: PRURITUS
     Dosage: 75 MG, 2X/DAY
     Route: 048
     Dates: start: 20110401, end: 20110401
  12. SIMVASTATIN [Concomitant]
     Indication: BLOOD CHOLESTEROL INCREASED
     Dosage: UNK
  13. VITAMIN D [Concomitant]
     Indication: HYPOVITAMINOSIS
     Dosage: UNK

REACTIONS (3)
  - CONFUSIONAL STATE [None]
  - NERVOUSNESS [None]
  - FEELING ABNORMAL [None]
